FAERS Safety Report 7933363-0 (Version None)
Quarter: 2011Q4

REPORT INFORMATION
  Report Type: 
  Country: None (occurrence: None)
  Receive Date: 20111122
  Receipt Date: 20111122
  Transmission Date: 20120403
  Serious: Yes (Other)
  Sender: FDA-Public Use
  Company Number: None

PATIENT
  Age: 45 Year
  Sex: Female
  Weight: 135.62 kg

DRUGS (3)
  1. IBUPROFEN [Concomitant]
  2. VITAMIN D2 [Concomitant]
  3. CYMBALTA [Suspect]
     Indication: MAJOR DEPRESSION
     Dosage: 1 OPILL
     Route: 048
     Dates: start: 20101201, end: 20111121

REACTIONS (9)
  - TENDERNESS [None]
  - ABDOMINAL DISCOMFORT [None]
  - INFLAMMATION [None]
  - HEADACHE [None]
  - NO THERAPEUTIC RESPONSE [None]
  - BACK PAIN [None]
  - ARTHRALGIA [None]
  - BILIARY COLIC [None]
  - HEPATITIS [None]
